FAERS Safety Report 10025439 (Version 1)
Quarter: 2014Q1

REPORT INFORMATION
  Report Type: Spontaneous
  Country: US (occurrence: US)
  Receive Date: 20140320
  Receipt Date: 20140320
  Transmission Date: 20141002
  Serious: Yes (Other)
  Sender: FDA-Public Use
  Company Number: US-BAYER-2014-041707

PATIENT
  Age: 43 Year
  Sex: Female
  Weight: 92.52 kg

DRUGS (20)
  1. YAZ [Suspect]
  2. DIFLUCAN [Concomitant]
     Dosage: 150 MG, UNK
     Route: 048
     Dates: start: 20070907
  3. METROGEL [Concomitant]
     Indication: FUNGAL INFECTION
     Dosage: 0.75 %, UNK
     Route: 067
     Dates: start: 20070907
  4. SYNTHROID [Concomitant]
     Dosage: 112 MCG
     Route: 048
  5. ZOLOFT [Concomitant]
     Dosage: 50 MG, UNK
     Route: 048
  6. ALLEGRA [Concomitant]
     Dosage: 60 MG, UNK
     Route: 048
  7. LORTAB [Concomitant]
     Dosage: 7.5/500 MG
     Route: 048
  8. ANCEF [Concomitant]
     Dosage: 2 G, UNK
     Route: 042
     Dates: start: 20070911
  9. DECADRON [Concomitant]
     Dosage: 10 UNK, UNK
     Route: 042
     Dates: start: 20070911
  10. TORADOL [Concomitant]
     Dosage: 30 MG, UNK
     Route: 042
     Dates: start: 20070911
  11. ZOFRAN [Concomitant]
     Dosage: 4 MG, UNK
     Route: 042
     Dates: start: 20070911
  12. FENTANYL [Concomitant]
     Dosage: UNK
     Route: 042
     Dates: start: 20070911
  13. VERSED [Concomitant]
     Dosage: 2 MG, UNK
     Route: 042
     Dates: start: 20070911
  14. NEOSTIGMINE [Concomitant]
     Dosage: UNK
     Route: 042
     Dates: start: 20070911
  15. ZEMURON [Concomitant]
     Dosage: UNK
     Route: 042
     Dates: start: 20070911
  16. PROPOFOL [Concomitant]
     Dosage: UNK
     Route: 042
     Dates: start: 20070911
  17. DEMEROL [Concomitant]
     Dosage: UNK
     Route: 042
     Dates: start: 20070911
  18. LASIX [Concomitant]
  19. LEVAQUIN [Concomitant]
  20. NEXIUM [Concomitant]

REACTIONS (1)
  - Deep vein thrombosis [None]
